FAERS Safety Report 21838256 (Version 6)
Quarter: 2024Q1

REPORT INFORMATION
  Report Type: Spontaneous
  Country: US (occurrence: US)
  Receive Date: 20230109
  Receipt Date: 20240220
  Transmission Date: 20240409
  Serious: Yes (Hospitalization, Other)
  Sender: FDA-Public Use
  Company Number: US-PFIZER INC-PV202300004228

PATIENT
  Age: 72 Year
  Sex: Female

DRUGS (1)
  1. IBRANCE [Suspect]
     Active Substance: PALBOCICLIB
     Dosage: UNK
     Dates: start: 20221201

REACTIONS (7)
  - Septic shock [Unknown]
  - Sepsis [Unknown]
  - Influenza [Unknown]
  - Bacterial infection [Unknown]
  - Neutropenia [Unknown]
  - Product dose omission in error [Unknown]
  - Blood test abnormal [Unknown]
